FAERS Safety Report 13716246 (Version 2)
Quarter: 2017Q3

REPORT INFORMATION
  Report Type: Other
  Country: CA (occurrence: CA)
  Receive Date: 20170705
  Receipt Date: 20170721
  Transmission Date: 20171127
  Serious: Yes (Other)
  Sender: FDA-Public Use
  Company Number: CA-APOTEX-2017AP013783

PATIENT
  Age: 38 Year
  Sex: Male

DRUGS (4)
  1. EZETROL [Suspect]
     Active Substance: EZETIMIBE
     Indication: PRODUCT USED FOR UNKNOWN INDICATION
     Dosage: UNK, QD
     Route: 048
  2. LIPITOR [Suspect]
     Active Substance: ATORVASTATIN CALCIUM
     Indication: TYPE IIA HYPERLIPIDAEMIA
     Route: 048
  3. APO-ROSUVASTATIN [Suspect]
     Active Substance: ROSUVASTATIN
     Dosage: UNK
     Route: 065
  4. APO-ROSUVASTATIN [Suspect]
     Active Substance: ROSUVASTATIN
     Indication: PRODUCT USED FOR UNKNOWN INDICATION
     Dosage: EVERY 1 DAY
     Route: 048

REACTIONS (6)
  - Blood creatine phosphokinase increased [Not Recovered/Not Resolved]
  - Hepatic pain [Not Recovered/Not Resolved]
  - Myalgia [Not Recovered/Not Resolved]
  - Drug intolerance [Not Recovered/Not Resolved]
  - Liver function test increased [Not Recovered/Not Resolved]
  - Headache [Not Recovered/Not Resolved]
